FAERS Safety Report 14484351 (Version 5)
Quarter: 2019Q1

REPORT INFORMATION
  Report Type: Spontaneous
  Country: US (occurrence: US)
  Receive Date: 20180205
  Receipt Date: 20190204
  Transmission Date: 20190417
  Serious: Yes (Life-Threatening, Other)
  Sender: FDA-Public Use
  Company Number: US-ASTRAZENECA-2018SE12552

PATIENT
  Age: 795 Month
  Sex: Male
  Weight: 104.3 kg

DRUGS (67)
  1. PRILOSEC OTC [Suspect]
     Active Substance: OMEPRAZOLE MAGNESIUM
     Indication: GASTROOESOPHAGEAL REFLUX DISEASE
     Route: 048
     Dates: start: 201112, end: 201801
  2. PROTONIX [Suspect]
     Active Substance: PANTOPRAZOLE SODIUM
     Indication: GASTROOESOPHAGEAL REFLUX DISEASE
     Route: 065
     Dates: start: 20111108
  3. CEPHALEXIN. [Concomitant]
     Active Substance: CEPHALEXIN
  4. WARFARIN [Concomitant]
     Active Substance: WARFARIN
  5. CELEXA [Concomitant]
     Active Substance: CITALOPRAM HYDROBROMIDE
  6. NORCO [Concomitant]
     Active Substance: ACETAMINOPHEN\HYDROCODONE BITARTRATE
     Dosage: 10-325 MG EVERY 6 HOURS
  7. GLIPIZIDE. [Concomitant]
     Active Substance: GLIPIZIDE
  8. LISINOPRIL. [Concomitant]
     Active Substance: LISINOPRIL
  9. NITROGLYCERINE [Concomitant]
     Active Substance: NITROGLYCERIN
  10. LISINOPRIL. [Concomitant]
     Active Substance: LISINOPRIL
  11. KLONOPIN [Concomitant]
     Active Substance: CLONAZEPAM
  12. PRAVACHOL [Concomitant]
     Active Substance: PRAVASTATIN SODIUM
  13. GABAPENTIN. [Concomitant]
     Active Substance: GABAPENTIN
  14. HYDROCHLOROTHIAZIDE. [Concomitant]
     Active Substance: HYDROCHLOROTHIAZIDE
     Route: 048
  15. BENAZEPRIL HYDROCHLORIDE. [Concomitant]
     Active Substance: BENAZEPRIL HYDROCHLORIDE
     Route: 048
  16. DOCUSATE SODIUM. [Concomitant]
     Active Substance: DOCUSATE SODIUM
  17. PRILOSEC [Suspect]
     Active Substance: OMEPRAZOLE MAGNESIUM
     Indication: GASTROOESOPHAGEAL REFLUX DISEASE
     Route: 048
     Dates: start: 19990707
  18. TRIMOX [Concomitant]
     Active Substance: AMOXICILLIN
  19. PROPULSID [Concomitant]
     Active Substance: CISAPRIDE
  20. ACEON [Concomitant]
     Active Substance: PERINDOPRIL ERBUMINE
  21. NITRO [Concomitant]
     Active Substance: NITROGLYCERIN
  22. NITROGLYCERIN. [Concomitant]
     Active Substance: NITROGLYCERIN
     Indication: CHEST PAIN
     Dosage: ONE TABLET EVERY 5 MINUTES UP TO 3 AS NEEDED
     Route: 060
  23. NOVOLOG [Concomitant]
     Active Substance: INSULIN ASPART
  24. PRILOSEC [Suspect]
     Active Substance: OMEPRAZOLE MAGNESIUM
     Indication: GASTROOESOPHAGEAL REFLUX DISEASE
     Route: 048
     Dates: start: 20011002
  25. PRILOSEC OTC [Suspect]
     Active Substance: OMEPRAZOLE MAGNESIUM
     Indication: GASTROOESOPHAGEAL REFLUX DISEASE
     Route: 048
     Dates: start: 20111104
  26. MAGNESIUM [Concomitant]
     Active Substance: MAGNESIUM
  27. METOPROLOL. [Concomitant]
     Active Substance: METOPROLOL
  28. CARVEDILOL. [Concomitant]
     Active Substance: CARVEDILOL
  29. COUMADIN [Concomitant]
     Active Substance: WARFARIN SODIUM
     Dosage: TWO TABLETS AT BEDTIME
     Route: 048
  30. WARFARIN [Concomitant]
     Active Substance: WARFARIN
  31. HYDROCODONE-ACETAMINOPHEN [Concomitant]
     Active Substance: ACETAMINOPHEN\HYDROCODONE
  32. ENOXAPARIN [Concomitant]
     Active Substance: ENOXAPARIN
  33. FLUTICASONE. [Concomitant]
     Active Substance: FLUTICASONE
  34. GLIMEPIRIDE. [Concomitant]
     Active Substance: GLIMEPIRIDE
  35. PRILOSEC [Suspect]
     Active Substance: OMEPRAZOLE MAGNESIUM
     Indication: GASTROOESOPHAGEAL REFLUX DISEASE
     Route: 048
     Dates: start: 199907, end: 200810
  36. PRILOSEC OTC [Suspect]
     Active Substance: OMEPRAZOLE MAGNESIUM
     Indication: GASTROOESOPHAGEAL REFLUX DISEASE
     Route: 048
     Dates: start: 201112
  37. ASPIRIN. [Concomitant]
     Active Substance: ASPIRIN
  38. ALLOPURINOL. [Concomitant]
     Active Substance: ALLOPURINOL
  39. FLONASE [Concomitant]
     Active Substance: FLUTICASONE PROPIONATE
  40. DEXILANT [Concomitant]
     Active Substance: DEXLANSOPRAZOLE
  41. TORSEMIDE. [Concomitant]
     Active Substance: TORSEMIDE
  42. CLONAZEPAM. [Concomitant]
     Active Substance: CLONAZEPAM
  43. PRILOSEC [Suspect]
     Active Substance: OMEPRAZOLE MAGNESIUM
     Indication: GASTROOESOPHAGEAL REFLUX DISEASE
     Route: 048
     Dates: start: 19900722, end: 19991115
  44. PRILOSEC [Suspect]
     Active Substance: OMEPRAZOLE MAGNESIUM
     Indication: GASTROOESOPHAGEAL REFLUX DISEASE
     Route: 048
     Dates: start: 20001113
  45. PROTONIX [Suspect]
     Active Substance: PANTOPRAZOLE SODIUM
     Indication: GASTROOESOPHAGEAL REFLUX DISEASE
     Route: 065
     Dates: start: 2011
  46. PROTONIX [Suspect]
     Active Substance: PANTOPRAZOLE SODIUM
     Indication: GASTROOESOPHAGEAL REFLUX DISEASE
     Route: 048
  47. NYSTATIN. [Concomitant]
     Active Substance: NYSTATIN
  48. MECLIZINE [Concomitant]
     Active Substance: MECLIZINE HYDROCHLORIDE
  49. LIPITOR [Concomitant]
     Active Substance: ATORVASTATIN CALCIUM
  50. METFORMIN [Concomitant]
     Active Substance: METFORMIN HYDROCHLORIDE
  51. AMARYL [Concomitant]
     Active Substance: GLIMEPIRIDE
  52. IMDUR [Concomitant]
     Active Substance: ISOSORBIDE MONONITRATE
  53. DEMADEX [Concomitant]
     Active Substance: TORSEMIDE
  54. RANITIDINE HYDROCHLORIDE. [Concomitant]
     Active Substance: RANITIDINE HYDROCHLORIDE
  55. HYDROCHLOROTHIAZIDE AND LISINOPRIL [Concomitant]
     Active Substance: HYDROCHLOROTHIAZIDE\LISINOPRIL
     Route: 048
  56. TETRACYCLINE [Concomitant]
     Active Substance: TETRACYCLINE
  57. ISOSORB [Concomitant]
  58. NEURONTIN [Concomitant]
     Active Substance: GABAPENTIN
  59. FUROSEMIDE. [Concomitant]
     Active Substance: FUROSEMIDE
  60. ONDANSETRON [Concomitant]
     Active Substance: ONDANSETRON
  61. INSULIN LISPRO [Concomitant]
     Active Substance: INSULIN LISPRO
  62. LOVENOX [Concomitant]
     Active Substance: ENOXAPARIN SODIUM
  63. LASIX [Concomitant]
     Active Substance: FUROSEMIDE
     Dosage: EVERY MORNING
  64. PRAVASTATIN. [Concomitant]
     Active Substance: PRAVASTATIN
  65. ALLOPURINOL. [Concomitant]
     Active Substance: ALLOPURINOL
  66. COREG [Concomitant]
     Active Substance: CARVEDILOL
  67. LISIPRO [Concomitant]

REACTIONS (5)
  - Renal failure [Not Recovered/Not Resolved]
  - Chronic kidney disease [Not Recovered/Not Resolved]
  - Nephrogenic anaemia [Unknown]
  - Acute kidney injury [Unknown]
  - Chronic kidney disease-mineral and bone disorder [Unknown]

NARRATIVE: CASE EVENT DATE: 201112
